FAERS Safety Report 13418171 (Version 2)
Quarter: 2017Q2

REPORT INFORMATION
  Report Type: Spontaneous
  Country: US (occurrence: US)
  Receive Date: 20170407
  Receipt Date: 20170428
  Transmission Date: 20170830
  Serious: Yes (Other)
  Sender: FDA-Public Use
  Company Number: US-INTERNATIONAL MEDICATION SYSTEMS, LIMITED-1065164

PATIENT
  Age: 59 Year
  Sex: Male
  Weight: 99.6 kg

DRUGS (1)
  1. LIDOCAINE HYDROCHLORIDE. [Suspect]
     Active Substance: LIDOCAINE HYDROCHLORIDE
     Indication: LOCAL ANAESTHESIA
     Route: 061
     Dates: start: 20170317, end: 20170317

REACTIONS (3)
  - Syringe issue [None]
  - Foreign body [Recovered/Resolved]
  - Removal of foreign body [Recovered/Resolved]

NARRATIVE: CASE EVENT DATE: 20170317
